FAERS Safety Report 20735465 (Version 1)
Quarter: 2022Q2

REPORT INFORMATION
  Report Type: Spontaneous
  Country: US (occurrence: None)
  Receive Date: 20220421
  Receipt Date: 20220421
  Transmission Date: 20220721
  Serious: Yes (Hospitalization)
  Sender: FDA-Public Use
  Company Number: None

PATIENT
  Sex: Male
  Weight: 62.1 kg

DRUGS (18)
  1. CISPLATIN [Suspect]
     Active Substance: CISPLATIN
  2. WELLBUTRIN [Concomitant]
  3. ACETAMINOPHEN [Concomitant]
  4. ALBUTEROL [Concomitant]
  5. AMOXICILLIN-POTASSIUM [Concomitant]
  6. ASCORBIC ACID [Concomitant]
  7. CEFEPIME 2000 MG IV every 12 hours [Concomitant]
  8. CENTRUM [Concomitant]
  9. CHLORHEXIDINE [Concomitant]
  10. CYCLORHEXIDINE [Concomitant]
  11. DEMEDE TOMIDINE [Concomitant]
  12. DEXTROSE [Concomitant]
  13. GABAPENTIN [Concomitant]
  14. GLUCAGON [Concomitant]
  15. HEPARIN PRESERVATIVE FREE [Concomitant]
  16. INSULIN ASPART [Concomitant]
  17. MELATONIN [Concomitant]
  18. THIAMINE [Concomitant]

REACTIONS (12)
  - Diarrhoea [None]
  - Hypotension [None]
  - Pneumonia [None]
  - Septic shock [None]
  - Acute respiratory failure [None]
  - Hypovolaemia [None]
  - Lactic acidosis [None]
  - Acute kidney injury [None]
  - Pseudomonas test positive [None]
  - Bacillus test positive [None]
  - Fall [None]
  - Hypoxia [None]

NARRATIVE: CASE EVENT DATE: 20220417
